FAERS Safety Report 4807646-7 (Version None)
Quarter: 2005Q4

REPORT INFORMATION
  Report Type: 
  Country: None (occurrence: None)
  Receive Date: 20051020
  Receipt Date: 20050228
  Transmission Date: 20060501
  Serious: Yes (Hospitalization, Other)
  Sender: FDA-Public Use
  Company Number: 2005037972

PATIENT
  Age: 62 Year
  Sex: Female
  Weight: 108.8633 kg

DRUGS (2)
  1. BEXTRA [Suspect]
     Indication: ARTHRITIS
     Dosage: 10 MG (10 MG, 1 IN 1 D), ORAL
     Route: 048
  2. VIOXX [Concomitant]

REACTIONS (3)
  - ARTHRALGIA [None]
  - KNEE ARTHROPLASTY [None]
  - PAIN IN EXTREMITY [None]
